FAERS Safety Report 19861432 (Version 4)
Quarter: 2021Q4

REPORT INFORMATION
  Report Type: Report from Study
  Country: DE (occurrence: DE)
  Receive Date: 20210920
  Receipt Date: 20211005
  Transmission Date: 20220303
  Serious: Yes (Hospitalization)
  Sender: FDA-Public Use
  Company Number: DE-CELGENE-DEU-20210808228

PATIENT
  Age: 69 Year
  Sex: Female

DRUGS (8)
  1. ABRAXANE [Suspect]
     Active Substance: PACLITAXEL
     Indication: Ductal adenocarcinoma of pancreas
     Route: 041
     Dates: start: 20210119, end: 20210331
  2. LENALIDOMIDE [Suspect]
     Active Substance: LENALIDOMIDE
     Indication: Ductal adenocarcinoma of pancreas
     Route: 048
     Dates: start: 20210420, end: 20210820
  3. GEMCITABINE [Suspect]
     Active Substance: GEMCITABINE
     Indication: Ductal adenocarcinoma of pancreas
     Dosage: 1500 MILLIGRAM
     Route: 041
     Dates: start: 20210119, end: 20210331
  4. DURVALUMAB [Suspect]
     Active Substance: DURVALUMAB
     Indication: Ductal adenocarcinoma of pancreas
     Route: 041
     Dates: start: 20210420, end: 20210811
  5. PANCRELIPASE [Concomitant]
     Active Substance: PANCRELIPASE
     Indication: Pancreatic enzymes
     Route: 048
     Dates: start: 20210820
  6. LOPERAMIDE [Concomitant]
     Active Substance: LOPERAMIDE
     Indication: Diarrhoea
     Route: 048
     Dates: start: 20210727
  7. METAMIZOLE [Concomitant]
     Active Substance: METAMIZOLE
     Indication: Tumour pain
     Dosage: 500 MILLIGRAM
     Route: 048
     Dates: start: 20210820
  8. PANTOZOL [Concomitant]
     Active Substance: PANTOPRAZOLE SODIUM
     Indication: Prophylaxis
     Dosage: 40 MILLIGRAM
     Route: 048

REACTIONS (2)
  - Colitis [Recovered/Resolved]
  - General physical health deterioration [Recovered/Resolved]

NARRATIVE: CASE EVENT DATE: 20210820
